FAERS Safety Report 7472109-X (Version None)
Quarter: 2011Q2

REPORT INFORMATION
  Report Type: 
  Country: None (occurrence: None)
  Receive Date: 20110511
  Receipt Date: 20101228
  Transmission Date: 20111010
  Serious: No
  Sender: FDA-Public Use
  Company Number: A0902310A

PATIENT
  Sex: Female

DRUGS (2)
  1. TYKERB [Suspect]
     Dosage: 500MG TWICE PER DAY
     Route: 048
     Dates: start: 20101221
  2. XELODA [Suspect]
     Dates: start: 20101215

REACTIONS (4)
  - ABDOMINAL DISCOMFORT [None]
  - DIARRHOEA [None]
  - PRURITUS GENERALISED [None]
  - DYSPNOEA [None]
